FAERS Safety Report 5233451-6 (Version None)
Quarter: 2007Q1

REPORT INFORMATION
  Report Type: 
  Country: None (occurrence: None)
  Receive Date: 20061208
  Receipt Date: 20060309
  Transmission Date: 20070707
  Serious: Yes (Other)
  Sender: FDA-Public Use
  Company Number: 2006UW04079

PATIENT
  Age: 51 Year
  Sex: Male

DRUGS (2)
  1. CRESTOR [Suspect]
     Dosage: 10 MG QD PO
     Route: 048
  2. CRESTOR [Suspect]
     Dosage: 5 MG QD PO
     Route: 048

REACTIONS (3)
  - ALOPECIA [None]
  - MADAROSIS [None]
  - SEXUAL DYSFUNCTION [None]
